FAERS Safety Report 9410015 (Version 1)
Quarter: 2013Q3

REPORT INFORMATION
  Report Type: Spontaneous
  Country: US (occurrence: US)
  Receive Date: 20130719
  Receipt Date: 20130719
  Transmission Date: 20140515
  Serious: No
  Sender: FDA-Public Use
  Company Number: US-009507513-1307USA010273

PATIENT
  Age: 79 Year
  Sex: Male

DRUGS (1)
  1. CLARITIN [Suspect]
     Indication: ALLERGIC SINUSITIS
     Dosage: 20 MG, ONCE
     Route: 048
     Dates: start: 20130712

REACTIONS (1)
  - Accidental overdose [Not Recovered/Not Resolved]
